FAERS Safety Report 5928480-0 (Version None)
Quarter: 2008Q4

REPORT INFORMATION
  Report Type: 
  Country: None (occurrence: None)
  Receive Date: 20081023
  Receipt Date: 20081014
  Transmission Date: 20090506
  Serious: Yes (Life-Threatening, Hospitalization)
  Sender: FDA-Public Use
  Company Number: PHHO2007DE12602

PATIENT
  Sex: Male
  Weight: 75 kg

DRUGS (12)
  1. TASIGNA [Suspect]
     Indication: CHRONIC MYELOID LEUKAEMIA
     Dosage: 400 MG, BID
     Route: 048
     Dates: start: 20050614, end: 20070728
  2. TASIGNA [Suspect]
     Dosage: UNK
  3. TASIGNA [Suspect]
     Dosage: 400 MG, BID
  4. RAMIPRIL DURA PLUS [Concomitant]
  5. TRIAMTERENE AND HYDROCHLOROTHIAZIDE [Concomitant]
  6. DELIX [Concomitant]
  7. NORVASC [Concomitant]
  8. BELOC ZOK [Concomitant]
  9. SIMVAHEXAL [Concomitant]
  10. OMACOR [Concomitant]
  11. MOXONIDINE [Concomitant]
  12. AMLODIPINE [Concomitant]

REACTIONS (9)
  - ACUTE CORONARY SYNDROME [None]
  - ACUTE MYOCARDIAL INFARCTION [None]
  - CHEST PAIN [None]
  - CORONARY ARTERY STENOSIS [None]
  - DYSPNOEA [None]
  - ELECTROCARDIOGRAM ST SEGMENT ELEVATION [None]
  - HYPERLIPIDAEMIA [None]
  - HYPERTENSION [None]
  - STENT PLACEMENT [None]
